FAERS Safety Report 19770623 (Version 1)
Quarter: 2021Q3

REPORT INFORMATION
  Report Type: Spontaneous
  Country: CA (occurrence: CA)
  Receive Date: 20210901
  Receipt Date: 20210901
  Transmission Date: 20211014
  Serious: Yes (Other)
  Sender: FDA-Public Use
  Company Number: CA-TEVA-2021-CA-1947117

PATIENT
  Sex: Male

DRUGS (4)
  1. CLONAZEPAM. [Suspect]
     Active Substance: CLONAZEPAM
     Indication: BIPOLAR II DISORDER
  2. CLONAZEPAM. [Suspect]
     Active Substance: CLONAZEPAM
     Indication: PANIC DISORDER
  3. CLONAZEPAM. [Suspect]
     Active Substance: CLONAZEPAM
     Indication: SUBSTANCE USE DISORDER
     Route: 065
  4. VENLAFAXINE HYDROCHLORIDE. [Suspect]
     Active Substance: VENLAFAXINE HYDROCHLORIDE
     Indication: DEPRESSION
     Route: 065

REACTIONS (3)
  - Off label use [Unknown]
  - Bipolar disorder [Unknown]
  - Drug ineffective [Unknown]
